FAERS Safety Report 8321060-1 (Version None)
Quarter: 2012Q2

REPORT INFORMATION
  Report Type: 
  Country: None (occurrence: None)
  Receive Date: 20120430
  Receipt Date: 20120425
  Transmission Date: 20120825
  Serious: Yes (Other)
  Sender: FDA-Public Use
  Company Number: PHEH2011US00462

PATIENT
  Sex: Male

DRUGS (10)
  1. PLAVIX [Concomitant]
  2. VASOTEC [Concomitant]
  3. ZOCOR [Concomitant]
  4. FLORINEF [Concomitant]
  5. ENALAPRIL MALEATE [Concomitant]
  6. PREDNISONE [Concomitant]
  7. DEMECLOCYCLINE HCL [Concomitant]
  8. ZOMETA [Suspect]
  9. COREG [Concomitant]
  10. NORCO [Concomitant]

REACTIONS (46)
  - EXPOSED BONE IN JAW [None]
  - RETROPERITONEAL LYMPHADENOPATHY [None]
  - ARTHRALGIA [None]
  - MYOCARDIAL INFARCTION [None]
  - ARTERIOSCLEROSIS [None]
  - PEPTIC ULCER [None]
  - ABDOMINAL PAIN [None]
  - CONSTIPATION [None]
  - DIARRHOEA [None]
  - INJURY [None]
  - OSTEOMYELITIS [None]
  - DEFORMITY [None]
  - FALL [None]
  - CORONARY ARTERY DISEASE [None]
  - METASTASES TO BONE [None]
  - METASTASES TO ADRENALS [None]
  - HAEMARTHROSIS [None]
  - RENAL FAILURE [None]
  - MUSCLE ATROPHY [None]
  - BACK PAIN [None]
  - MASS [None]
  - ANXIETY [None]
  - ASTHENIA [None]
  - SYNOVIAL CYST [None]
  - PATHOLOGICAL FRACTURE [None]
  - HYPERTENSION [None]
  - TRANSITIONAL CELL CARCINOMA [None]
  - METASTASES TO ABDOMINAL CAVITY [None]
  - INTERVERTEBRAL DISC DEGENERATION [None]
  - LYMPHADENOPATHY MEDIASTINAL [None]
  - PROSTATOMEGALY [None]
  - PAIN [None]
  - ANHEDONIA [None]
  - JAW FRACTURE [None]
  - LUNG NEOPLASM MALIGNANT [None]
  - INTERMITTENT CLAUDICATION [None]
  - HYPERLIPIDAEMIA [None]
  - BLOOD PRESSURE DECREASED [None]
  - OSTEONECROSIS OF JAW [None]
  - INFECTION [None]
  - EMOTIONAL DISTRESS [None]
  - LUNG HYPERINFLATION [None]
  - SKIN OEDEMA [None]
  - CHRONIC SINUSITIS [None]
  - EMPHYSEMA [None]
  - HYPONATRAEMIA [None]
